FAERS Safety Report 20746198 (Version 1)
Quarter: 2022Q2

REPORT INFORMATION
  Report Type: Spontaneous
  Country: US (occurrence: US)
  Receive Date: 20220425
  Receipt Date: 20220425
  Transmission Date: 20220721
  Serious: No
  Sender: FDA-Public Use
  Company Number: US-PFIZER INC-202200538618

PATIENT
  Age: 66 Year
  Sex: Female
  Weight: 83.91 kg

DRUGS (5)
  1. XELJANZ [Suspect]
     Active Substance: TOFACITINIB CITRATE
     Indication: Rheumatoid arthritis
     Dosage: 5 MG
  2. XELJANZ [Suspect]
     Active Substance: TOFACITINIB CITRATE
     Indication: Osteoarthritis
     Dosage: 5 MG, 2X/DAY (ONCE IN MORNING AND ONCE IN THE AFTERNOON OR NIGHTTIME)
  3. XELJANZ [Suspect]
     Active Substance: TOFACITINIB CITRATE
     Indication: Fibromyalgia
  4. METHOTREXATE [Concomitant]
     Active Substance: METHOTREXATE
     Dosage: 2.5 MG, 1X/DAY (AT NIGHTTIME)
  5. PREGABALIN [Concomitant]
     Active Substance: PREGABALIN
     Indication: Fibromyalgia
     Dosage: 150 MG, 2X/DAY

REACTIONS (3)
  - Tremor [Unknown]
  - Confusional state [Unknown]
  - Intentional product misuse [Unknown]
